FAERS Safety Report 8133957-6 (Version None)
Quarter: 2012Q1

REPORT INFORMATION
  Report Type: 
  Country: None (occurrence: None)
  Receive Date: 20120213
  Receipt Date: 20120207
  Transmission Date: 20120608
  Serious: Yes (Life-Threatening, Hospitalization)
  Sender: FDA-Public Use
  Company Number: FR-ASTRAZENECA-2012SE04598

PATIENT
  Age: 304 Day
  Sex: Female
  Weight: 6.9 kg

DRUGS (4)
  1. MOTILIUM [Concomitant]
     Indication: VOMITING
     Route: 048
  2. OMEPRAZOLE [Suspect]
     Indication: GASTROOESOPHAGEAL REFLUX DISEASE
     Dosage: 1 MG/KG DAILY
     Route: 048
     Dates: start: 20110701, end: 20120101
  3. VITAMIN D [Concomitant]
     Indication: VITAMIN SUPPLEMENTATION
     Route: 048
  4. MOTILIUM [Concomitant]
     Indication: GASTROOESOPHAGEAL REFLUX DISEASE
     Route: 048

REACTIONS (3)
  - APLASTIC ANAEMIA [None]
  - NEUTROPENIA [None]
  - AGRANULOCYTOSIS [None]
